FAERS Safety Report 5902915-1 (Version None)
Quarter: 2008Q3

REPORT INFORMATION
  Report Type: 
  Country: None (occurrence: None)
  Receive Date: 20080929
  Receipt Date: 20080929
  Transmission Date: 20090109
  Serious: Yes (Other)
  Sender: FDA-Public Use
  Company Number: None

PATIENT
  Age: 66 Year
  Sex: Female
  Weight: 66.2252 kg

DRUGS (1)
  1. SULFAMETHOXAZOLE TRIMETHOPRIM [Suspect]
     Indication: SINUSITIS
     Dosage: 1 TABLET 2 TIMES A DAY PO
     Route: 048
     Dates: start: 20080902, end: 20080916

REACTIONS (9)
  - BURNING SENSATION [None]
  - DRUG EFFECT DECREASED [None]
  - DYSPHAGIA [None]
  - FEAR [None]
  - INSOMNIA [None]
  - PRURITUS [None]
  - RASH [None]
  - SKIN REACTION [None]
  - URTICARIA [None]
